FAERS Safety Report 6851983-1 (Version None)
Quarter: 2010Q3

REPORT INFORMATION
  Report Type: 
  Country: None (occurrence: None)
  Receive Date: 20100717
  Receipt Date: 20071105
  Transmission Date: 20110219
  Serious: No
  Sender: FDA-Public Use
  Company Number: US-PFIZER INC-2007094197

PATIENT
  Sex: Female
  Weight: 112.7 kg

DRUGS (3)
  1. CHANTIX [Suspect]
     Indication: SMOKING CESSATION THERAPY
     Dates: start: 20071001
  2. NORVASC [Concomitant]
  3. VALSARTAN [Concomitant]

REACTIONS (2)
  - BLADDER DISORDER [None]
  - EYE PAIN [None]
